FAERS Safety Report 12912903 (Version 2)
Quarter: 2016Q4

REPORT INFORMATION
  Report Type: Spontaneous
  Country: US (occurrence: US)
  Receive Date: 20161104
  Receipt Date: 20161111
  Transmission Date: 20170207
  Serious: Yes (Other)
  Sender: FDA-Public Use
  Company Number: US-CELGENEUS-USA-2016108372

PATIENT
  Age: 69 Year
  Sex: Female
  Weight: 72.64 kg

DRUGS (1)
  1. OTEZLA [Suspect]
     Active Substance: APREMILAST
     Indication: PRODUCT USED FOR UNKNOWN INDICATION
     Dosage: 60 MILLIGRAM
     Route: 048
     Dates: start: 20161019, end: 20161027

REACTIONS (7)
  - Nausea [Unknown]
  - Diverticulitis [Unknown]
  - Back pain [Unknown]
  - Condition aggravated [Unknown]
  - Pain in extremity [Unknown]
  - Peripheral swelling [Unknown]
  - Headache [Unknown]

NARRATIVE: CASE EVENT DATE: 201610
